FAERS Safety Report 11673373 (Version 1)
Quarter: 2015Q4

REPORT INFORMATION
  Report Type: Spontaneous
  Country: US (occurrence: US)
  Receive Date: 20151027
  Receipt Date: 20151027
  Transmission Date: 20160304
  Serious: Yes (Other)
  Sender: FDA-Public Use
  Company Number: US-ELI_LILLY_AND_COMPANY-US201001001879

PATIENT
  Age: 80 Year
  Sex: Female

DRUGS (6)
  1. DIOVAN /01319601/ [Concomitant]
     Dosage: 160 MG, DAILY (1/D)
  2. METOPROLOL SUCCINATE. [Concomitant]
     Active Substance: METOPROLOL SUCCINATE
     Dosage: 25 MG, DAILY (1/D)
  3. PROVENTIL                               /USA/ [Concomitant]
  4. FORTEO [Suspect]
     Active Substance: TERIPARATIDE
     Indication: OSTEOPOROSIS
     Dosage: 20 UG, DAILY (1/D)
     Dates: start: 200910
  5. FORTEO [Suspect]
     Active Substance: TERIPARATIDE
     Dosage: 20 UG, DAILY (1/D)
  6. FORTEO [Suspect]
     Active Substance: TERIPARATIDE
     Dosage: 20 UG, DAILY (1/D)

REACTIONS (7)
  - Wrist fracture [Unknown]
  - Blood pressure decreased [Unknown]
  - Cough [Not Recovered/Not Resolved]
  - Fall [Recovered/Resolved]
  - Nausea [Unknown]
  - Dyspnoea [Unknown]
  - Syncope [Recovered/Resolved]

NARRATIVE: CASE EVENT DATE: 200912
